FAERS Safety Report 25700124 (Version 1)
Quarter: 2025Q3

REPORT INFORMATION
  Report Type: Spontaneous
  Country: US (occurrence: US)
  Receive Date: 20250819
  Receipt Date: 20250819
  Transmission Date: 20251021
  Serious: No
  Sender: BRISTOL-MYERS SQUIBB COMPANY
  Company Number: US-BRISTOL-MYERS SQUIBB COMPANY-2025-115054

PATIENT
  Age: 37 Year
  Sex: Male

DRUGS (1)
  1. COBENFY [Suspect]
     Active Substance: TROSPIUM CHLORIDE\XANOMELINE
     Indication: Schizophrenia
     Route: 048

REACTIONS (2)
  - Musculoskeletal stiffness [Recovered/Resolved]
  - Paranoia [Unknown]

NARRATIVE: CASE EVENT DATE: 20250501
